FAERS Safety Report 12838788 (Version 1)
Quarter: 2016Q4

REPORT INFORMATION
  Report Type: Spontaneous
  Country: US (occurrence: US)
  Receive Date: 20161011
  Receipt Date: 20161011
  Transmission Date: 20170207
  Serious: Yes (Death)
  Sender: FDA-Public Use
  Company Number: None

PATIENT
  Age: 77 Year
  Sex: Male
  Weight: 102.1 kg

DRUGS (2)
  1. ASPIRIN. [Concomitant]
     Active Substance: ASPIRIN
  2. VISIPAQUE [Suspect]
     Active Substance: IODIXANOL

REACTIONS (3)
  - Cardiac arrest [None]
  - Contrast media reaction [None]
  - Blood pressure decreased [None]

NARRATIVE: CASE EVENT DATE: 20160517
